FAERS Safety Report 8523980 (Version 7)
Quarter: 2013Q2

REPORT INFORMATION
  Report Type: Report from Study
  Country: DE (occurrence: DE)
  Receive Date: 20120420
  Receipt Date: 20130410
  Transmission Date: 20140414
  Serious: Yes (Hospitalization)
  Sender: FDA-Public Use
  Company Number: DE-ROCHE-1057897

PATIENT
  Age: 51 Year
  Sex: Female
  Weight: 97.7 kg

DRUGS (3)
  1. VEMURAFENIB [Suspect]
     Indication: MALIGNANT MELANOMA
     Dosage: LAST DOSE PRIOR TO SAE: 05 APR 2012
     Route: 048
     Dates: start: 20120308, end: 20120405
  2. VEMURAFENIB [Suspect]
     Dosage: DOSE REDUCED
     Route: 048
     Dates: start: 20120417
  3. BEPANTHEN [Concomitant]
     Route: 065
     Dates: start: 20120305, end: 20120414

REACTIONS (1)
  - Electrolyte imbalance [Recovered/Resolved with Sequelae]
